FAERS Safety Report 23288031 (Version 6)
Quarter: 2024Q1

REPORT INFORMATION
  Report Type: Spontaneous
  Country: CA (occurrence: CA)
  Receive Date: 20231212
  Receipt Date: 20240304
  Transmission Date: 20240410
  Serious: Yes (Hospitalization, Other)
  Sender: FDA-Public Use
  Company Number: CA-PFIZER INC-202300439719

PATIENT
  Age: 70 Year
  Sex: Male

DRUGS (9)
  1. CIBINQO [Suspect]
     Active Substance: ABROCITINIB
     Indication: Dermatitis atopic
     Dosage: 100 MG, 1X/DAY
     Route: 048
     Dates: start: 20231110, end: 2023
  2. ATORVASTATIN [Concomitant]
     Active Substance: ATORVASTATIN
     Dosage: UNK
  3. BETADERM [Concomitant]
     Active Substance: BETAMETHASONE VALERATE
     Dosage: 500 MG
  4. CLARITIN [Concomitant]
     Active Substance: LORATADINE
     Dosage: 1 DF
  5. PLAVIX [Concomitant]
     Active Substance: CLOPIDOGREL BISULFATE
     Dosage: UNK
  6. PROTOPIC [Concomitant]
     Active Substance: TACROLIMUS
     Dosage: 60 MG
  7. SYNTHROID [Concomitant]
     Active Substance: LEVOTHYROXINE SODIUM
     Dosage: UNK
  8. TRIADERM [Concomitant]
     Dosage: 500 MG
  9. TEVA MOMETASONE [Concomitant]
     Dosage: 50 G

REACTIONS (5)
  - Fall [Unknown]
  - Hip fracture [Unknown]
  - Lower limb fracture [Not Recovered/Not Resolved]
  - Walking aid user [Not Recovered/Not Resolved]
  - Pain [Unknown]

NARRATIVE: CASE EVENT DATE: 20230101
